FAERS Safety Report 7444365-5 (Version None)
Quarter: 2011Q2

REPORT INFORMATION
  Report Type: 
  Country: None (occurrence: None)
  Receive Date: 20110429
  Receipt Date: 20110418
  Transmission Date: 20111010
  Serious: Yes (Hospitalization)
  Sender: FDA-Public Use
  Company Number: US-JNJFOC-20110408217

PATIENT
  Sex: Female
  Weight: 86.18 kg

DRUGS (4)
  1. LYRICA [Concomitant]
     Indication: FIBROMYALGIA
     Route: 048
  2. VIMPAT [Concomitant]
     Indication: CONVULSION
     Route: 048
  3. TOPAMAX [Suspect]
     Indication: CONVULSION
     Route: 048
  4. SAVELLA [Concomitant]
     Indication: FIBROMYALGIA
     Route: 048

REACTIONS (6)
  - CLOSTRIDIAL INFECTION [None]
  - COLITIS [None]
  - FUNGAL INFECTION [None]
  - FIBROMYALGIA [None]
  - ABNORMAL LOSS OF WEIGHT [None]
  - PRODUCT ODOUR ABNORMAL [None]
